FAERS Safety Report 5786181-6 (Version None)
Quarter: 2008Q2

REPORT INFORMATION
  Report Type: 
  Country: None (occurrence: None)
  Receive Date: 20080624
  Receipt Date: 20080623
  Transmission Date: 20081010
  Serious: Yes (Life-Threatening, Hospitalization, Disabling)
  Sender: FDA-Public Use
  Company Number: B0433123A

PATIENT
  Age: 49 Year
  Sex: Female
  Weight: 72 kg

DRUGS (16)
  1. PAXIL [Suspect]
     Indication: ANXIETY
     Route: 048
     Dates: start: 20020101, end: 20060613
  2. ZYPREXA [Suspect]
     Indication: DELUSION
     Dosage: 5MG TWICE PER DAY
     Route: 048
     Dates: start: 20050728, end: 20060613
  3. ZYPREXA [Suspect]
     Dosage: 10MG TWICE PER DAY
     Route: 048
     Dates: start: 20050804, end: 20060613
  4. RISPERDAL [Suspect]
     Indication: ANXIETY
     Route: 048
     Dates: start: 20020101, end: 20060613
  5. RISPERDAL [Suspect]
     Dosage: .1G TWICE PER DAY
     Route: 048
  6. SOLANAX [Suspect]
     Indication: ANXIETY
     Dosage: .4MG TWICE PER DAY
     Route: 048
     Dates: start: 20020101, end: 20060613
  7. ALPRAZOLAM [Suspect]
     Indication: DRUG USE FOR UNKNOWN INDICATION
     Route: 048
  8. AKINETON [Suspect]
     Indication: PARKINSONISM
     Dosage: .3G PER DAY
     Route: 048
     Dates: start: 20020101, end: 20060613
  9. ARTANE [Suspect]
     Indication: PARKINSONISM
     Dosage: .1G TWICE PER DAY
     Route: 048
     Dates: start: 20050223, end: 20060613
  10. ACINON [Suspect]
     Indication: OBESITY
     Dosage: 150MG TWICE PER DAY
     Route: 048
     Dates: start: 20060310, end: 20060613
  11. DEPAS [Suspect]
     Indication: ANXIETY
     Route: 048
     Dates: start: 20050901, end: 20060613
  12. DIOVAN [Suspect]
     Indication: DRUG USE FOR UNKNOWN INDICATION
     Route: 048
  13. URSO 250 [Suspect]
     Indication: DRUG USE FOR UNKNOWN INDICATION
     Route: 048
  14. GLYSENNID [Suspect]
     Indication: DRUG USE FOR UNKNOWN INDICATION
     Route: 048
  15. EBRANTIL [Suspect]
     Indication: NEUROGENIC BLADDER
     Route: 048
     Dates: start: 20060403, end: 20060612
  16. POLLAKISU [Suspect]
     Indication: NEUROGENIC BLADDER
     Dosage: 6MG PER DAY
     Route: 048
     Dates: start: 20060403, end: 20060612

REACTIONS (17)
  - AFFECT LABILITY [None]
  - ALTERED STATE OF CONSCIOUSNESS [None]
  - BLOOD SODIUM DECREASED [None]
  - CRANIAL NERVE DISORDER [None]
  - DRUG WITHDRAWAL SYNDROME [None]
  - FEELING ABNORMAL [None]
  - HYPONATRAEMIA [None]
  - HYPOXIA [None]
  - INAPPROPRIATE ANTIDIURETIC HORMONE SECRETION [None]
  - MALAISE [None]
  - MUSCLE TIGHTNESS [None]
  - NEUROLEPTIC MALIGNANT SYNDROME [None]
  - PYREXIA [None]
  - SPEECH DISORDER [None]
  - TALIPES [None]
  - TREMOR [None]
  - WITHDRAWAL SYNDROME [None]
